FAERS Safety Report 21005698 (Version 2)
Quarter: 2022Q3

REPORT INFORMATION
  Report Type: Spontaneous
  Country: US (occurrence: US)
  Receive Date: 20220624
  Receipt Date: 20220709
  Transmission Date: 20221026
  Serious: No
  Sender: FDA-Public Use
  Company Number: US-JNJFOC-20220629123

PATIENT
  Age: 28 Year
  Sex: Male

DRUGS (1)
  1. WOMENS ROGAINE [Suspect]
     Active Substance: MINOXIDIL
     Indication: Alopecia
     Dosage: DOSE: USED IT FOR A WEEK TWICE A DAY FOR 8 DAYS
     Route: 061
     Dates: start: 20220604, end: 202206

REACTIONS (3)
  - Dandruff [Recovered/Resolved]
  - Dermatitis contact [Recovered/Resolved]
  - Application site dryness [Recovered/Resolved]

NARRATIVE: CASE EVENT DATE: 20220601
